FAERS Safety Report 13043655 (Version 1)
Quarter: 2016Q4

REPORT INFORMATION
  Report Type: Spontaneous
  Country: IT (occurrence: IT)
  Receive Date: 20161220
  Receipt Date: 20161220
  Transmission Date: 20170207
  Serious: Yes (Hospitalization)
  Sender: FDA-Public Use
  Company Number: IT-SUN PHARMACEUTICAL INDUSTRIES LTD-2016RR-129387

PATIENT
  Age: 48 Year
  Sex: Male

DRUGS (7)
  1. LIORESAL 25MG [Concomitant]
     Indication: PARALYSIS
     Dosage: 50 MG
     Route: 048
     Dates: start: 20150101
  2. TARGIN 5 MG/2,5 MG [Suspect]
     Active Substance: NALOXONE HYDROCHLORIDE\OXYCODONE HYDROCHLORIDE
     Indication: PAIN
     Dosage: 70 DF TOTAL
     Route: 048
     Dates: start: 20161128, end: 20161128
  3. DEPAKIN CHRONO 500 MG [Suspect]
     Active Substance: VALPROIC ACID
     Indication: MOOD SWINGS
     Dosage: 20 G TOTAL
     Route: 048
     Dates: start: 20161128, end: 20161128
  4. DAPAROX 20 MG [Suspect]
     Active Substance: PAROXETINE HYDROCHLORIDE
     Indication: DEPRESSION
     Dosage: 840 MG TOTAL
     Route: 048
     Dates: start: 20161128, end: 20161128
  5. GABAPENTIN. [Suspect]
     Active Substance: GABAPENTIN
     Indication: MOOD SWINGS
     Dosage: 12 G TOTAL
     Route: 048
     Dates: start: 20161128, end: 20161128
  6. FENTANYL. [Suspect]
     Active Substance: FENTANYL
     Indication: PAIN
     Dosage: 300 UG TOTAL
     Route: 062
     Dates: start: 20161128, end: 20161128
  7. XANAX [Suspect]
     Active Substance: ALPRAZOLAM
     Indication: ANXIETY
     Dosage: 15 MG TOTAL
     Route: 048
     Dates: start: 20161128, end: 20161128

REACTIONS (1)
  - Bradyphrenia [Recovered/Resolved]

NARRATIVE: CASE EVENT DATE: 20161128
